FAERS Safety Report 6913155-1 (Version None)
Quarter: 2010Q3

REPORT INFORMATION
  Report Type: 
  Country: None (occurrence: None)
  Receive Date: 20100806
  Receipt Date: 20091029
  Transmission Date: 20110219
  Serious: No
  Sender: FDA-Public Use
  Company Number: US-PFIZER INC-2008040650

PATIENT
  Sex: Female

DRUGS (4)
  1. DETROL LA [Suspect]
     Indication: INCONTINENCE
     Dosage: UNK
  2. DARIFENACIN HYDROBROMIDE [Suspect]
     Dosage: UNK
  3. VESICARE [Suspect]
     Indication: INCONTINENCE
     Dosage: UNK
  4. OXYBUTYNIN [Suspect]
     Indication: INCONTINENCE
     Dosage: UNK

REACTIONS (3)
  - DRUG INEFFECTIVE [None]
  - DRY EYE [None]
  - DRY SKIN [None]
